FAERS Safety Report 4705475-6 (Version None)
Quarter: 2005Q3

REPORT INFORMATION
  Report Type: 
  Country: None (occurrence: None)
  Receive Date: 20050701
  Receipt Date: 20050523
  Transmission Date: 20060218
  Serious: Yes (Other)
  Sender: FDA-Public Use
  Company Number: PHBS2005BE07260

PATIENT
  Age: 93 Year
  Sex: Female

DRUGS (2)
  1. ZOMETA [Suspect]
     Indication: MULTIPLE MYELOMA
     Dosage: 4 MG EVERY 6 WEEKS
     Route: 042
     Dates: start: 20030123, end: 20050406
  2. DEXAMETHASONE [Concomitant]
     Dosage: 20 MG FOR 4 DAYS 3 DAYS OFF X 2 EVERY 6 WEEK
     Route: 065
     Dates: start: 20021101, end: 20041001

REACTIONS (4)
  - ABSCESS JAW [None]
  - ASEPTIC NECROSIS BONE [None]
  - BONE SWELLING [None]
  - STREPTOCOCCAL SEROLOGY POSITIVE [None]
